FAERS Safety Report 8160226-0 (Version None)
Quarter: 2012Q1

REPORT INFORMATION
  Report Type: 
  Country: None (occurrence: None)
  Receive Date: 20120223
  Receipt Date: 20120214
  Transmission Date: 20120608
  Serious: Yes (Hospitalization)
  Sender: FDA-Public Use
  Company Number: DE-ABBOTT-12P-062-0904452-00

PATIENT
  Sex: Female

DRUGS (8)
  1. METHOTREXATE [Suspect]
     Indication: RHEUMATOID ARTHRITIS
     Route: 048
     Dates: start: 20090101, end: 20110424
  2. FORSAMAX [Concomitant]
     Indication: OSTEOPOROSIS
     Route: 048
  3. METHOTREXATE [Suspect]
     Dates: start: 20110520, end: 20110827
  4. HUMIRA [Suspect]
     Dates: start: 20111026
  5. METHOTREXATE [Suspect]
     Dates: start: 20111026
  6. HUMIRA [Suspect]
     Indication: RHEUMATOID ARTHRITIS
     Route: 058
     Dates: start: 20080601, end: 20110419
  7. HUMIRA [Suspect]
     Dates: start: 20110520, end: 20110827
  8. CALCIUM CARBONATE [Concomitant]
     Indication: OSTEOPOROSIS
     Route: 048

REACTIONS (10)
  - ARTHRITIS [None]
  - LOCALISED INFECTION [None]
  - IRITIS [None]
  - ECZEMA [None]
  - POST PROCEDURAL INFECTION [None]
  - CONJUNCTIVITIS [None]
  - SYNOVITIS [None]
  - BURSITIS [None]
  - FOOT DEFORMITY [None]
  - ACQUIRED CLAW TOE [None]
